FAERS Safety Report 6104898-0 (Version None)
Quarter: 2009Q1

REPORT INFORMATION
  Report Type: 
  Country: None (occurrence: None)
  Receive Date: 20090306
  Receipt Date: 20090227
  Transmission Date: 20090719
  Serious: Yes (Other)
  Sender: FDA-Public Use
  Company Number: ES-ASTRAZENECA-2009AC00682

PATIENT
  Age: 8 Month
  Sex: Female

DRUGS (3)
  1. MEROPENEM [Suspect]
  2. AMOXICILLIN AND CLAVULANATE POTASSIUM [Suspect]
  3. AMIKACIN [Suspect]

REACTIONS (2)
  - CLOSTRIDIUM DIFFICILE COLITIS [None]
  - SYSTEMIC INFLAMMATORY RESPONSE SYNDROME [None]
